FAERS Safety Report 23564120 (Version 1)
Quarter: 2024Q1

REPORT INFORMATION
  Report Type: Other
  Country: CN (occurrence: CN)
  Receive Date: 20240226
  Receipt Date: 20240226
  Transmission Date: 20240409
  Serious: Yes (Other)
  Sender: FDA-Public Use
  Company Number: CN-ASTELLAS-2024US004416

PATIENT
  Age: 73 Year
  Sex: Female
  Weight: 40 kg

DRUGS (3)
  1. ISAVUCONAZOLE [Suspect]
     Active Substance: ISAVUCONAZOLE
     Indication: Fungal infection
     Dosage: 0.2 G, THRICE DAILY
     Route: 041
     Dates: start: 20231206, end: 20240118
  2. AMPHOTERICIN B [Suspect]
     Active Substance: AMPHOTERICIN B
     Indication: Fungal infection
     Route: 041
     Dates: start: 20231214, end: 20240118
  3. AMPHOTERICIN B [Suspect]
     Active Substance: AMPHOTERICIN B
     Indication: Fungal infection
     Dosage: 5 MG, TWICE DAILY (VIA AEROSOL INHALATION)
     Route: 050
     Dates: start: 20231204, end: 20240118

REACTIONS (3)
  - Ventricular extrasystoles [Recovering/Resolving]
  - Atrial fibrillation [Recovering/Resolving]
  - Intentional product use issue [Unknown]

NARRATIVE: CASE EVENT DATE: 20231206
